FAERS Safety Report 15812765 (Version 1)
Quarter: 2019Q1

REPORT INFORMATION
  Report Type: Report from Study
  Country: AR (occurrence: AR)
  Receive Date: 20190111
  Receipt Date: 20190111
  Transmission Date: 20190417
  Serious: Yes (Other)
  Sender: FDA-Public Use
  Company Number: AR-ACTELION-A-CH2019-184779

PATIENT
  Age: 56 Year
  Sex: Female

DRUGS (1)
  1. OPSUMIT [Suspect]
     Active Substance: MACITENTAN
     Indication: PULMONARY ARTERIAL HYPERTENSION
     Dosage: 10 MG, QD
     Route: 048
     Dates: start: 201504

REACTIONS (2)
  - Abdominal wall abscess [Recovering/Resolving]
  - Abscess drainage [Recovering/Resolving]

NARRATIVE: CASE EVENT DATE: 20181210
